FAERS Safety Report 15324894 (Version 3)
Quarter: 2018Q3

REPORT INFORMATION
  Report Type: Spontaneous
  Country: IR (occurrence: IR)
  Receive Date: 20180828
  Receipt Date: 20180911
  Transmission Date: 20181010
  Serious: Yes (Other)
  Sender: FDA-Public Use
  Company Number: IR-LPDUSPRD-20181529

PATIENT
  Age: 17 Year
  Sex: Female

DRUGS (2)
  1. PREDNISOLONE. [Concomitant]
     Active Substance: PREDNISOLONE
     Dosage: UNKNOWN
     Route: 065
     Dates: end: 2018
  2. FERINJECT [Suspect]
     Active Substance: FERRIC CARBOXYMALTOSE
     Dosage: 500 MG
     Route: 041
     Dates: start: 20180807, end: 20180807

REACTIONS (7)
  - Hypoaesthesia [Unknown]
  - Tachycardia [Unknown]
  - Hyperhidrosis [Unknown]
  - Hypotension [Unknown]
  - Anxiety [Unknown]
  - Muscle spasms [Unknown]
  - Flushing [Unknown]

NARRATIVE: CASE EVENT DATE: 20180807
